FAERS Safety Report 12112321 (Version 1)
Quarter: 2016Q1

REPORT INFORMATION
  Report Type: Other
  Country: US (occurrence: US)
  Receive Date: 20160224
  Receipt Date: 20160224
  Transmission Date: 20160526
  Serious: Yes (Hospitalization)
  Sender: FDA-Public Use
  Company Number: US-ACORDA-ACO_115394_2015

PATIENT
  Sex: Male

DRUGS (10)
  1. CITALOPRAM [Concomitant]
     Active Substance: CITALOPRAM HYDROBROMIDE
     Indication: PRODUCT USED FOR UNKNOWN INDICATION
     Dosage: 20 MG, QD
     Route: 065
  2. MORPHINE [Concomitant]
     Active Substance: MORPHINE
     Indication: BACK PAIN
     Dosage: 60 MG, TWICE OR THREE TIMES DAILY
     Route: 065
  3. AMPYRA [Suspect]
     Active Substance: DALFAMPRIDINE
     Indication: MULTIPLE SCLEROSIS
     Dosage: 10 MG, Q 12 HRS
     Route: 048
     Dates: start: 201507
  4. AVONEX [Concomitant]
     Active Substance: INTERFERON BETA-1A
     Indication: PRODUCT USED FOR UNKNOWN INDICATION
     Dosage: UNK, WEEKLY
     Route: 065
     Dates: start: 2013
  5. MELOXICAM. [Concomitant]
     Active Substance: MELOXICAM
     Indication: PRODUCT USED FOR UNKNOWN INDICATION
     Dosage: 15 MG, UNK
     Route: 065
  6. OLANZAPINE. [Concomitant]
     Active Substance: OLANZAPINE
     Indication: PRODUCT USED FOR UNKNOWN INDICATION
     Dosage: 5 MG, HS
     Route: 065
  7. DULOXETINE. [Concomitant]
     Active Substance: DULOXETINE
     Indication: PRODUCT USED FOR UNKNOWN INDICATION
     Dosage: 80 MG, UNK
     Route: 065
  8. SUMATRIPTAN. [Concomitant]
     Active Substance: SUMATRIPTAN
     Indication: CLUSTER HEADACHE
     Dosage: UNK, PRN
     Route: 051
  9. VITAMIN D [Concomitant]
     Active Substance: CHOLECALCIFEROL
     Indication: PRODUCT USED FOR UNKNOWN INDICATION
     Dosage: 5000 UNK, UNK
     Route: 065
  10. VERAPAMIL [Concomitant]
     Active Substance: VERAPAMIL HYDROCHLORIDE
     Indication: CLUSTER HEADACHE
     Dosage: UNK, PRN
     Route: 065

REACTIONS (2)
  - Multiple sclerosis relapse [Not Recovered/Not Resolved]
  - Urinary tract infection [Unknown]
